FAERS Safety Report 4942195-7 (Version None)
Quarter: 2006Q1

REPORT INFORMATION
  Report Type: 
  Country: None (occurrence: None)
  Receive Date: 20060313
  Receipt Date: 20050906
  Transmission Date: 20060701
  Serious: No
  Sender: FDA-Public Use
  Company Number: US-GLAXOSMITHKLINE-A0573009A

PATIENT
  Sex: Female

DRUGS (1)
  1. EQUATE NICOTINE GUM [Suspect]
     Dates: start: 20050902, end: 20050905

REACTIONS (2)
  - DRUG INEFFECTIVE [None]
  - NICOTINE DEPENDENCE [None]
